FAERS Safety Report 22133581 (Version 2)
Quarter: 2023Q1

REPORT INFORMATION
  Report Type: Spontaneous
  Country: FI (occurrence: FI)
  Receive Date: 20230324
  Receipt Date: 20230329
  Transmission Date: 20230417
  Serious: Yes (Hospitalization)
  Sender: FDA-Public Use
  Company Number: FI-CELLTRION INC.-2023FI006025

PATIENT

DRUGS (1)
  1. INFLIXIMAB [Suspect]
     Active Substance: INFLIXIMAB
     Indication: Colitis ulcerative
     Dosage: UNK, EVERY 10 DAYS
     Route: 058

REACTIONS (3)
  - Infection [Recovered/Resolved]
  - Weight decreased [Unknown]
  - Off label use [Unknown]
